FAERS Safety Report 9753246 (Version 2)
Quarter: 2013Q4

REPORT INFORMATION
  Report Type: Spontaneous
  Country: US (occurrence: US)
  Receive Date: 20131213
  Receipt Date: 20131213
  Transmission Date: 20140711
  Serious: No
  Sender: FDA-Public Use
  Company Number: US-GILEAD-2010-0027621

PATIENT
  Sex: Male

DRUGS (13)
  1. LETAIRIS [Suspect]
     Indication: PULMONARY ARTERIAL HYPERTENSION
     Route: 048
     Dates: start: 20091021
  2. JANUVIA [Concomitant]
  3. PRECOSE [Concomitant]
  4. STARLIX [Concomitant]
  5. NEXIUM [Concomitant]
  6. MULTIVITAMIN [Concomitant]
  7. BENICAR [Concomitant]
  8. ASPIRIN [Concomitant]
  9. SERTRALINE [Concomitant]
  10. SIMVASTATIN [Concomitant]
  11. METFORMIN [Concomitant]
  12. DIGOXIN [Concomitant]
  13. METOPROLOL [Concomitant]

REACTIONS (3)
  - Local swelling [Unknown]
  - Palpitations [Unknown]
  - Dyspnoea [Unknown]
